FAERS Safety Report 24277537 (Version 2)
Quarter: 2024Q3

REPORT INFORMATION
  Report Type: Spontaneous
  Country: US (occurrence: US)
  Receive Date: 20240903
  Receipt Date: 20240919
  Transmission Date: 20241017
  Serious: Yes (Other)
  Sender: COOPERSURGICAL
  Company Number: US-COOPERSURGICAL, INC.-2024CPS002209

PATIENT
  Age: 32 Year
  Sex: Female
  Weight: 96.417 kg

DRUGS (5)
  1. PARAGARD T 380A [Suspect]
     Active Substance: COPPER
     Indication: Contraception
     Dosage: UNK
     Route: 015
     Dates: start: 20240624, end: 20240805
  2. FLUOXETINE [Concomitant]
     Active Substance: FLUOXETINE HYDROCHLORIDE
     Dosage: 20 MG, 1X/DAY IN THE MORNING
     Route: 048
     Dates: start: 20240606
  3. FLUOXETINE [Concomitant]
     Active Substance: FLUOXETINE HYDROCHLORIDE
     Dosage: 40 MG, 1X/DAY IN THE MORNING
     Route: 048
     Dates: start: 20240727
  4. OFLOXACIN [Concomitant]
     Active Substance: OFLOXACIN
     Dosage: 10 DROP, 1X/DAY
  5. CICLOPIROX [Concomitant]
     Active Substance: CICLOPIROX
     Dosage: UNK, 2X/DAY
     Route: 061
     Dates: start: 20240729

REACTIONS (3)
  - Uterine leiomyoma [Unknown]
  - Embedded device [Recovered/Resolved]
  - Device dislocation [Recovered/Resolved]

NARRATIVE: CASE EVENT DATE: 20240715
